FAERS Safety Report 10466509 (Version 1)
Quarter: 2014Q3

REPORT INFORMATION
  Report Type: Spontaneous
  Country: GB (occurrence: None)
  Receive Date: 20140917
  Receipt Date: 20140917
  Transmission Date: 20150326
  Serious: Yes (Other)
  Sender: FDA-Public Use
  Company Number: 2014SA114484

PATIENT
  Sex: Male

DRUGS (3)
  1. SOLOSTAR (SOLOSTAR) [Suspect]
     Active Substance: DEVICE
  2. APIDRA SOLOSTAR [Suspect]
     Active Substance: INSULIN GLULISINE
     Dosage: 54 UNIT (S)  1 DAY (S)
  3. LANTUS [Suspect]
     Active Substance: INSULIN GLARGINE
     Dosage: INJECTION , SOLUTION / 100 INTERNATIONAL UNIT (S) (100 IU/ML)

REACTIONS (8)
  - Apparent death [None]
  - Wrong drug administered [None]
  - Accidental overdose [None]
  - Blood glucose decreased [None]
  - Emotional distress [None]
  - Product name confusion [None]
  - Suicidal ideation [None]
  - Feeling abnormal [None]
